FAERS Safety Report 6343588-6 (Version None)
Quarter: 2009Q3

REPORT INFORMATION
  Report Type: 
  Country: None (occurrence: None)
  Receive Date: 20090904
  Receipt Date: 20090904
  Transmission Date: 20100115
  Serious: Yes (Disabling)
  Sender: FDA-Public Use
  Company Number: None

PATIENT
  Sex: Male
  Weight: 70.3075 kg

DRUGS (2)
  1. LEVAQUIN [Suspect]
     Indication: PYREXIA
     Dosage: 250 MG - 1 PILL FOR 10 DAYS
     Dates: start: 20090709, end: 20090718
  2. LEVAQUIN [Suspect]
     Indication: PYREXIA
     Dosage: 500 MG - 1 PILL FOR 10 DAYS
     Dates: start: 20090807, end: 20090816

REACTIONS (2)
  - TENDON INJURY [None]
  - TENDON RUPTURE [None]
